FAERS Safety Report 8837928 (Version 2)
Quarter: 2014Q3

REPORT INFORMATION
  Report Type: Report from Study
  Country: US (occurrence: US)
  Receive Date: 20121012
  Receipt Date: 20140825
  Transmission Date: 20150326
  Serious: Yes (Hospitalization, Other)
  Sender: FDA-Public Use
  Company Number: US-ROCHE-1137064

PATIENT
  Age: 74 Year
  Sex: Male

DRUGS (1)
  1. RITUXAN [Suspect]
     Active Substance: RITUXIMAB
     Indication: CHRONIC LYMPHOCYTIC LEUKAEMIA
     Route: 042
     Dates: start: 20000725

REACTIONS (8)
  - Thrombocytopenia [Unknown]
  - Epistaxis [Unknown]
  - Fatigue [Unknown]
  - Injection site reaction [Unknown]
  - Chills [Unknown]
  - Pancytopenia [Unknown]
  - Rectal haemorrhage [Unknown]
  - Restlessness [Unknown]

NARRATIVE: CASE EVENT DATE: 20000801
